FAERS Safety Report 5743434-5 (Version None)
Quarter: 2008Q2

REPORT INFORMATION
  Report Type: 
  Country: None (occurrence: None)
  Receive Date: 20080519
  Receipt Date: 20080519
  Transmission Date: 20081010
  Serious: No
  Sender: FDA-Public Use
  Company Number: None

PATIENT
  Age: 53 Year
  Sex: Female
  Weight: 51.2565 kg

DRUGS (1)
  1. ACTONEL [Suspect]
     Indication: OSTEOPOROSIS
     Dosage: ONE PILL ONCE A WEEK PO
     Route: 048
     Dates: start: 20080512, end: 20080512

REACTIONS (3)
  - MUSCULOSKELETAL CHEST PAIN [None]
  - PAIN [None]
  - PYREXIA [None]
